FAERS Safety Report 5051137-8 (Version None)
Quarter: 2006Q2

REPORT INFORMATION
  Report Type: 
  Country: None (occurrence: None)
  Receive Date: 20060614
  Receipt Date: 20060406
  Transmission Date: 20061013
  Serious: Yes (Other)
  Sender: FDA-Public Use
  Company Number: 443865

PATIENT
  Age: 79 Year
  Sex: Female

DRUGS (10)
  1. BONIVA [Suspect]
     Indication: OSTEOPOROSIS
     Dosage: ORAL
     Route: 048
     Dates: start: 20051015, end: 20060315
  2. INDERAL [Concomitant]
  3. HYDROCHLOROTHIAZIDE [Concomitant]
  4. DIOVAN [Concomitant]
  5. CELEBREX [Concomitant]
  6. SYNTHROID [Concomitant]
  7. COUMADIN [Concomitant]
  8. COSOPT (DORZOLAMIDE HYDROCHLORIDE/TIMOLOL) [Concomitant]
  9. UNSPECIFIED DRUG (GENERIC UNKNOWN) [Concomitant]
  10. AMITRIPTYLINE (AMITRIPTYLINE) [Concomitant]

REACTIONS (3)
  - CARPAL TUNNEL SYNDROME [None]
  - PAIN IN EXTREMITY [None]
  - SHOULDER PAIN [None]
